FAERS Safety Report 6378334-3 (Version None)
Quarter: 2009Q3

REPORT INFORMATION
  Report Type: 
  Country: None (occurrence: None)
  Receive Date: 20090925
  Receipt Date: 20090921
  Transmission Date: 20100115
  Serious: Yes (Other)
  Sender: FDA-Public Use
  Company Number: US-SANOFI-SYNTHELABO-A03200903946

PATIENT
  Sex: Female
  Weight: 93.9 kg

DRUGS (9)
  1. EXTRA STRENGTH TYLENOL [Concomitant]
     Route: 065
     Dates: start: 20050101
  2. ELMIRON [Concomitant]
     Indication: CYSTITIS INTERSTITIAL
     Route: 065
     Dates: start: 20060101
  3. ATARAX [Concomitant]
     Route: 065
     Dates: start: 20070101
  4. COUMADIN [Concomitant]
     Indication: ANTICOAGULANT THERAPY
     Route: 048
  5. PROTONIX [Concomitant]
     Route: 065
     Dates: start: 20050101
  6. MULTAQ [Suspect]
     Indication: ATRIAL FIBRILLATION
     Route: 048
     Dates: start: 20090901, end: 20090905
  7. FLAXSEED OIL [Concomitant]
     Dosage: UNK
     Route: 065
  8. CALTRATE [Concomitant]
     Dosage: UNK
     Route: 065
  9. MULTI-VITAMINS [Concomitant]
     Dosage: UNK
     Route: 065

REACTIONS (8)
  - ABDOMINAL PAIN UPPER [None]
  - ATRIAL FIBRILLATION [None]
  - ATRIAL FLUTTER [None]
  - FATIGUE [None]
  - GASTROOESOPHAGEAL REFLUX DISEASE [None]
  - MENTAL IMPAIRMENT [None]
  - NAUSEA [None]
  - PAIN IN EXTREMITY [None]
